FAERS Safety Report 6745904-X (Version None)
Quarter: 2010Q2

REPORT INFORMATION
  Report Type: 
  Country: None (occurrence: None)
  Receive Date: 20100528
  Receipt Date: 20100528
  Transmission Date: 20101027
  Serious: Yes (Other)
  Sender: FDA-Public Use
  Company Number: None

PATIENT
  Age: 3 Year
  Sex: Female
  Weight: 13.6079 kg

DRUGS (1)
  1. CHILDREN'S TYLENOL SUSPENSION [Suspect]
     Indication: PYREXIA

REACTIONS (5)
  - ABDOMINAL PAIN UPPER [None]
  - DRUG INEFFECTIVE [None]
  - MALAISE [None]
  - PRODUCT QUALITY ISSUE [None]
  - VIRAL INFECTION [None]
